FAERS Safety Report 10483077 (Version 1)
Quarter: 2014Q3

REPORT INFORMATION
  Report Type: Report from Study
  Country: ES (occurrence: ES)
  Receive Date: 20140930
  Receipt Date: 20140930
  Transmission Date: 20150326
  Serious: Yes (Other)
  Sender: FDA-Public Use
  Company Number: ES-AMGEN-ESPSP2014074135

PATIENT
  Sex: Female
  Weight: 67 kg

DRUGS (1)
  1. PROLIA [Suspect]
     Active Substance: DENOSUMAB
     Indication: OSTEOPOROSIS POSTMENOPAUSAL
     Route: 065

REACTIONS (10)
  - Spinal deformity [Unknown]
  - Asthma [Unknown]
  - Asthenia [Unknown]
  - Activities of daily living impaired [Unknown]
  - Back pain [Unknown]
  - Rheumatoid arthritis [Unknown]
  - Bone density decreased [Unknown]
  - Abnormal loss of weight [Unknown]
  - Body height decreased [Unknown]
  - Osteogenesis imperfecta [Unknown]
